FAERS Safety Report 10788720 (Version 4)
Quarter: 2015Q1

REPORT INFORMATION
  Report Type: Spontaneous
  Country: JP (occurrence: JP)
  Receive Date: 20150212
  Receipt Date: 20150326
  Transmission Date: 20150721
  Serious: Yes (Hospitalization, Other)
  Sender: FDA-Public Use
  Company Number: JP-ASTRAZENECA-2015SE12156

PATIENT
  Age: 68 Year
  Sex: Male

DRUGS (6)
  1. EXCELASE [Concomitant]
     Indication: GASTROENTERITIS
     Dosage: IN MORNINGS, NOON AND EVENINGS, DOSE UNKNOWN
     Route: 048
     Dates: end: 20150204
  2. GLIMEPIRIDE. [Concomitant]
     Active Substance: GLIMEPIRIDE
     Indication: TYPE 2 DIABETES MELLITUS
     Route: 048
     Dates: end: 20150204
  3. FORXIGA [Suspect]
     Active Substance: DAPAGLIFLOZIN
     Indication: TYPE 2 DIABETES MELLITUS
     Route: 048
     Dates: start: 20141027, end: 20150204
  4. GLACTIV [Concomitant]
     Active Substance: SITAGLIPTIN
     Indication: TYPE 2 DIABETES MELLITUS
     Route: 048
     Dates: start: 201409, end: 20150204
  5. FAMOTIDINE. [Concomitant]
     Active Substance: FAMOTIDINE
     Indication: GASTROENTERITIS
     Route: 048
     Dates: end: 20150204
  6. ALINAMIN F [Concomitant]
     Active Substance: FURSULTIAMINE HYDROCHLORIDE
     Indication: HYPOVITAMINOSIS
     Route: 048
     Dates: end: 20150204

REACTIONS (5)
  - Hyperglycaemia [Unknown]
  - Altered state of consciousness [Unknown]
  - Dehydration [Unknown]
  - Road traffic accident [Unknown]
  - Intentional product misuse [Unknown]

NARRATIVE: CASE EVENT DATE: 20150204
